FAERS Safety Report 20059167 (Version 4)
Quarter: 2022Q2

REPORT INFORMATION
  Report Type: Report from Study
  Country: US (occurrence: None)
  Receive Date: 20211111
  Receipt Date: 20220413
  Transmission Date: 20220721
  Serious: Yes (Death, Life-Threatening, Hospitalization, Other)
  Sender: FDA-Public Use
  Company Number: US-ROCHE-2951710

PATIENT
  Age: 69 Year
  Sex: Female
  Weight: 71 kg

DRUGS (4)
  1. ATEZOLIZUMAB [Suspect]
     Active Substance: ATEZOLIZUMAB
     Indication: Lymphoma transformation
     Dosage: ON DAY 1 AND 15
     Route: 041
     Dates: start: 20210412
  2. RITUXIMAB [Suspect]
     Active Substance: RITUXIMAB
     Indication: Lymphoma transformation
     Dosage: ON DAY 1 OF CYCLE 1, ON DAY 1 AND 15 FROM CYCLE 2?LAST ADMINISTERED: 12/APR/2021
     Route: 041
     Dates: start: 20210329
  3. GEMCITABINE [Suspect]
     Active Substance: GEMCITABINE
     Indication: Lymphoma transformation
     Dosage: ON DAY 1 OF CYCLE 1, AND ON DAY 1 AND 15 FROM CYCLE 2?LAST ADMINISTERED: 12/APR/2021
     Route: 042
     Dates: start: 20210329
  4. OXALIPLATIN [Suspect]
     Active Substance: OXALIPLATIN
     Indication: Lymphoma transformation
     Dosage: ON DAY 1 OF CYCLE 1, AND ON DAY 1 AND 15 FROM CYCLE 2?LAST ADMINISTERED: 12/APR/2021
     Route: 042
     Dates: start: 20210329

REACTIONS (10)
  - Disease progression [Fatal]
  - Pyrexia [Unknown]
  - Hypertension [Unknown]
  - Back pain [Unknown]
  - Sepsis [Unknown]
  - Lymphocyte count decreased [Unknown]
  - Neutrophil count decreased [Unknown]
  - Obesity [Unknown]
  - White blood cell count decreased [Unknown]
  - Pyrexia [Recovered/Resolved]

NARRATIVE: CASE EVENT DATE: 20210426
